FAERS Safety Report 7486608-8 (Version None)
Quarter: 2011Q2

REPORT INFORMATION
  Report Type: 
  Country: None (occurrence: None)
  Receive Date: 20110517
  Receipt Date: 20100930
  Transmission Date: 20111010
  Serious: No
  Sender: FDA-Public Use
  Company Number: US-NOVEN-ALL1-2010-05150

PATIENT
  Sex: Male
  Weight: 36.281 kg

DRUGS (9)
  1. DAYTRANA [Suspect]
     Dosage: 20 MG, 1X/DAY:QD
     Route: 062
     Dates: start: 20100901
  2. RISPERDAL [Concomitant]
     Dosage: .5 MG, 2X/DAY:BID
     Route: 048
  3. ZONEGRAN [Concomitant]
     Dosage: 125 MG, 3X/DAY:TID
     Route: 048
  4. TRAZODONE HCL [Concomitant]
     Dosage: 25 MG, (NIGHTLY)1X/DAY:QD
     Route: 048
  5. CLORAZEPATE DIPOTASSIUM [Concomitant]
     Dosage: 3.75 MG, UNKNOWN
     Route: 048
  6. FOCALIN XR [Concomitant]
     Dosage: 30 MG, 1X/DAY:QD
     Route: 048
  7. FOCALIN [Concomitant]
     Dosage: 5 MG, 1X/DAY:QD
     Route: 048
  8. KEPPRA [Concomitant]
     Dosage: 1000 MG, UNKNOWN
     Route: 048
  9. SINGULAIR [Concomitant]
     Dosage: 5 MG, (NIGHTLY)1X/DAY:QD
     Route: 048

REACTIONS (4)
  - ERYTHEMA [None]
  - PSYCHOMOTOR HYPERACTIVITY [None]
  - PRODUCT QUALITY ISSUE [None]
  - AGGRESSION [None]
